FAERS Safety Report 7999365-3 (Version None)
Quarter: 2011Q4

REPORT INFORMATION
  Report Type: 
  Country: None (occurrence: None)
  Receive Date: 20111221
  Receipt Date: 20111209
  Transmission Date: 20120403
  Serious: Yes (Hospitalization)
  Sender: FDA-Public Use
  Company Number: NL-MEDIMMUNE-MEDI-0014085

PATIENT
  Sex: Female

DRUGS (14)
  1. SYNAGIS [Suspect]
     Route: 030
     Dates: start: 20111201, end: 20111201
  2. ENALAPRIL MALEATE [Concomitant]
  3. PHENPROCOUMON [Concomitant]
     Route: 042
  4. FERRO [Concomitant]
     Dates: end: 20111208
  5. SYNAGIS [Suspect]
     Dates: start: 20111209, end: 20111209
  6. FLUCONAZOLE [Concomitant]
     Route: 048
  7. ALBUTEROL SULFATE AUTOHALER [Concomitant]
     Route: 055
  8. COTRIM [Concomitant]
     Dates: end: 20111208
  9. SYNAGIS [Suspect]
     Route: 030
     Dates: start: 20111108, end: 20111108
  10. FUROSEMIDE [Concomitant]
  11. FLUTICASONE PROPIONATE [Concomitant]
     Route: 055
  12. OMEPRAZOLE SODIUM [Concomitant]
  13. POLYETHYLENE GLYCOL [Concomitant]
  14. DOMPERIDONE MALEATE [Concomitant]

REACTIONS (4)
  - MEDICAL DEVICE CHANGE [None]
  - INCISION SITE INFECTION [None]
  - CATHETER SITE DISCHARGE [None]
  - PAIN [None]
